FAERS Safety Report 11142053 (Version 1)
Quarter: 2015Q2

REPORT INFORMATION
  Report Type: Spontaneous
  Country: US (occurrence: US)
  Receive Date: 20150527
  Receipt Date: 20150527
  Transmission Date: 20150821
  Serious: No
  Sender: FDA-Public Use
  Company Number: US-MALLINCKRODT-QSC-2014-0534

PATIENT
  Age: 37 Year
  Sex: Female
  Weight: 92.52 kg

DRUGS (4)
  1. FLONASE                            /00908302/ [Concomitant]
     Dosage: UNK
  2. H.P. ACTHAR [Suspect]
     Active Substance: CORTICOTROPIN
     Indication: MULTIPLE SCLEROSIS RELAPSE
     Dosage: UNK, QD
     Dates: start: 20140803, end: 20140807
  3. LYRICA [Concomitant]
     Active Substance: PREGABALIN
     Dosage: UNK
  4. GILENYA [Concomitant]
     Active Substance: FINGOLIMOD HYDROCHLORIDE
     Dosage: UNK
     Dates: start: 2013

REACTIONS (1)
  - Blood blister [Recovering/Resolving]

NARRATIVE: CASE EVENT DATE: 20140812
